FAERS Safety Report 6830851-5 (Version None)
Quarter: 2010Q3

REPORT INFORMATION
  Report Type: 
  Country: None (occurrence: None)
  Receive Date: 20100709
  Receipt Date: 20100709
  Transmission Date: 20110219
  Serious: Yes (Life-Threatening, Hospitalization)
  Sender: FDA-Public Use
  Company Number: None

PATIENT
  Age: 58 Year
  Sex: Male

DRUGS (1)
  1. ZOLPIDEM [Suspect]
     Indication: INSOMNIA
     Dosage: 5-10 MG PRN PO
     Route: 048
     Dates: start: 20081209, end: 20100325

REACTIONS (2)
  - AMNESIA [None]
  - MULTIPLE DRUG OVERDOSE [None]
